FAERS Safety Report 8159379-X (Version None)
Quarter: 2012Q1

REPORT INFORMATION
  Report Type: 
  Country: None (occurrence: None)
  Receive Date: 20120223
  Receipt Date: 20120216
  Transmission Date: 20120608
  Serious: Yes (Other)
  Sender: FDA-Public Use
  Company Number: US-PFIZER INC-2011315528

PATIENT
  Sex: Female
  Weight: 56.7 kg

DRUGS (13)
  1. PREMARIN [Suspect]
     Indication: OFF LABEL USE
     Dosage: UNK
     Route: 067
  2. DURAGESIC-100 [Concomitant]
     Dosage: 100 UG, EVERY 72 HOURS
  3. TOPAMAX [Concomitant]
     Indication: CONVULSION
     Dosage: UNK
  4. LEXAPRO [Concomitant]
     Indication: DEPRESSION
     Dosage: UNK
  5. SYNTHROID [Concomitant]
     Indication: THYROID DISORDER
     Dosage: UNK
  6. PREMARIN [Suspect]
     Indication: ENDOMETRIOSIS
  7. KLONOPIN [Concomitant]
     Dosage: UNK
  8. VALIUM [Concomitant]
     Dosage: UNK
  9. VITAMIN D [Concomitant]
     Dosage: 2000 IU, 2X/DAY
  10. CALTRATE 600+D [Concomitant]
     Dosage: UNK, 2X/DAY
  11. MOTRIN [Concomitant]
     Dosage: 800 MG, UNK
  12. ESTROGENS [Suspect]
     Indication: ENDOMETRIOSIS
     Dosage: UNK
  13. MULTI-VITAMINS [Concomitant]
     Indication: EYE DISORDER
     Dosage: UNK

REACTIONS (3)
  - MIGRAINE [None]
  - BREAST ENLARGEMENT [None]
  - BREAST CYST [None]
